FAERS Safety Report 4973893-7 (Version None)
Quarter: 2006Q2

REPORT INFORMATION
  Report Type: 
  Country: None (occurrence: None)
  Receive Date: 20060417
  Receipt Date: 20060406
  Transmission Date: 20061013
  Serious: Yes (Other)
  Sender: FDA-Public Use
  Company Number: US-JNJFOC-20060401563

PATIENT
  Sex: Female

DRUGS (18)
  1. REMICADE [Suspect]
     Indication: RHEUMATOID ARTHRITIS
     Route: 042
  2. ATENOLOL [Concomitant]
  3. FOLIC ACID [Concomitant]
  4. METHOTREXATE [Concomitant]
  5. NORVASC [Concomitant]
  6. OSCAL [Concomitant]
  7. SYNTHROID [Concomitant]
  8. TYLENOL (CAPLET) [Concomitant]
  9. ZYRTEC [Concomitant]
  10. ACTONEL [Concomitant]
  11. CENTRUM SILVER MULTIVITAMIN [Concomitant]
  12. CENTRUM SILVER MULTIVITAMIN [Concomitant]
  13. CENTRUM SILVER MULTIVITAMIN [Concomitant]
  14. CENTRUM SILVER MULTIVITAMIN [Concomitant]
  15. CENTRUM SILVER MULTIVITAMIN [Concomitant]
  16. CENTRUM SILVER MULTIVITAMIN [Concomitant]
  17. CENTRUM SILVER MULTIVITAMIN [Concomitant]
  18. CENTRUM SILVER MULTIVITAMIN [Concomitant]

REACTIONS (1)
  - SQUAMOUS CELL CARCINOMA [None]
